FAERS Safety Report 23195910 (Version 1)
Quarter: 2023Q4

REPORT INFORMATION
  Report Type: Spontaneous
  Country: IT (occurrence: IT)
  Receive Date: 20231117
  Receipt Date: 20231117
  Transmission Date: 20240109
  Serious: Yes (Other)
  Sender: FDA-Public Use
  Company Number: IT-MYLANLABS-2023M1121377

PATIENT
  Age: 2 Year
  Sex: Female

DRUGS (16)
  1. TOPIRAMATE [Suspect]
     Active Substance: TOPIRAMATE
     Indication: Sleep related hypermotor epilepsy
     Dosage: UNK
     Route: 065
  2. TOPIRAMATE [Suspect]
     Active Substance: TOPIRAMATE
     Indication: Focal dyscognitive seizures
  3. ZONISAMIDE [Suspect]
     Active Substance: ZONISAMIDE
     Indication: Sleep related hypermotor epilepsy
     Dosage: 50 MILLIGRAM, QD
     Route: 065
  4. ZONISAMIDE [Suspect]
     Active Substance: ZONISAMIDE
     Indication: Focal dyscognitive seizures
  5. LEVETIRACETAM [Suspect]
     Active Substance: LEVETIRACETAM
     Indication: Sleep related hypermotor epilepsy
     Dosage: 1000 MILLIGRAM, QD
     Route: 065
  6. LEVETIRACETAM [Suspect]
     Active Substance: LEVETIRACETAM
     Indication: Focal dyscognitive seizures
  7. VALPROATE [Suspect]
     Active Substance: VALPROIC ACID
     Indication: Sleep related hypermotor epilepsy
     Dosage: UNK
     Route: 065
  8. VALPROATE [Suspect]
     Active Substance: VALPROIC ACID
     Indication: Focal dyscognitive seizures
  9. CARBAMAZEPINE [Suspect]
     Active Substance: CARBAMAZEPINE
     Indication: Sleep related hypermotor epilepsy
     Dosage: UNK, PRIOR TO CURRENT PRESENTATION.
     Route: 065
  10. CARBAMAZEPINE [Suspect]
     Active Substance: CARBAMAZEPINE
     Indication: Focal dyscognitive seizures
     Dosage: 600 MILLIGRAM, QD, ON CURRENT PRESENTATION.
     Route: 065
  11. CLOBAZAM [Suspect]
     Active Substance: CLOBAZAM
     Indication: Sleep related hypermotor epilepsy
     Dosage: UNK
     Route: 065
  12. CLOBAZAM [Suspect]
     Active Substance: CLOBAZAM
     Indication: Focal dyscognitive seizures
  13. PERAMPANEL [Suspect]
     Active Substance: PERAMPANEL
     Indication: Sleep related hypermotor epilepsy
     Dosage: 6 MILLIGRAM, QD
     Route: 065
  14. PERAMPANEL [Suspect]
     Active Substance: PERAMPANEL
     Indication: Focal dyscognitive seizures
  15. CLONAZEPAM [Suspect]
     Active Substance: CLONAZEPAM
     Indication: Sleep related hypermotor epilepsy
     Dosage: UNK
     Route: 065
  16. CLONAZEPAM [Suspect]
     Active Substance: CLONAZEPAM
     Indication: Focal dyscognitive seizures

REACTIONS (1)
  - Therapy non-responder [Unknown]
